FAERS Safety Report 16077927 (Version 2)
Quarter: 2019Q2

REPORT INFORMATION
  Report Type: Spontaneous
  Country: DE (occurrence: DE)
  Receive Date: 20190315
  Receipt Date: 20190402
  Transmission Date: 20190711
  Serious: Yes (Other)
  Sender: FDA-Public Use
  Company Number: DE-HIKMA PHARMACEUTICALS USA INC.-DE-H14001-19-01600

PATIENT
  Age: 62 Year
  Sex: Male

DRUGS (8)
  1. BORTEZOMIB. [Suspect]
     Active Substance: BORTEZOMIB
     Indication: HAEMATOPOIETIC STEM CELL MOBILISATION
     Route: 065
  2. ADRIAMYCIN [Suspect]
     Active Substance: DOXORUBICIN HYDROCHLORIDE
     Indication: HAEMATOPOIETIC STEM CELL MOBILISATION
     Route: 065
  3. DEXAMETHASON [Suspect]
     Active Substance: DEXAMETHASONE
     Indication: PLASMA CELL MYELOMA
     Route: 065
  4. CYCLOPHOSPHAMID [Suspect]
     Active Substance: CYCLOPHOSPHAMIDE
     Route: 065
  5. DEXAMETHASON [Suspect]
     Active Substance: DEXAMETHASONE
     Indication: HAEMATOPOIETIC STEM CELL MOBILISATION
     Route: 065
  6. ADRIAMYCIN [Suspect]
     Active Substance: DOXORUBICIN HYDROCHLORIDE
     Indication: PLASMA CELL MYELOMA
  7. BORTEZOMIB. [Suspect]
     Active Substance: BORTEZOMIB
     Indication: PLASMA CELL MYELOMA
  8. CYCLOPHOSPHAMID [Suspect]
     Active Substance: CYCLOPHOSPHAMIDE
     Indication: HAEMATOPOIETIC STEM CELL MOBILISATION
     Route: 065

REACTIONS (3)
  - Rectal haemorrhage [Recovered/Resolved]
  - Epistaxis [Recovered/Resolved]
  - Paraesthesia [Unknown]
